FAERS Safety Report 8383086-1 (Version None)
Quarter: 2012Q2

REPORT INFORMATION
  Report Type: 
  Country: None (occurrence: None)
  Receive Date: 20120524
  Receipt Date: 20111212
  Transmission Date: 20120825
  Serious: Yes (Hospitalization)
  Sender: FDA-Public Use
  Company Number: ZA-SANOFI-AVENTIS-2012SA035865

PATIENT
  Sex: Female
  Weight: 1.5 kg

DRUGS (4)
  1. LANTUS [Suspect]
     Route: 064
     Dates: start: 20110101, end: 20110101
  2. SOLOSTAR [Suspect]
     Dates: start: 20110101, end: 20110101
  3. APIDRA SOLOSTAR [Suspect]
     Route: 064
     Dates: start: 20110101, end: 20110101
  4. SOLOSTAR [Suspect]
     Indication: DEVICE THERAPY
     Dates: start: 20110101, end: 20110101

REACTIONS (2)
  - PREMATURE BABY [None]
  - FOETAL EXPOSURE DURING PREGNANCY [None]
